FAERS Safety Report 5261844-X (Version None)
Quarter: 2007Q1

REPORT INFORMATION
  Report Type: 
  Country: None (occurrence: None)
  Receive Date: 20070310
  Receipt Date: 20070228
  Transmission Date: 20070707
  Serious: Yes (Death)
  Sender: FDA-Public Use
  Company Number: 2006UW21610

PATIENT
  Age: 16317 Day
  Sex: Male
  Weight: 171.4 kg

DRUGS (2)
  1. SEROQUEL [Suspect]
     Indication: PSYCHOTIC DISORDER
     Dosage: 100 MG TO 300 MG
     Route: 048
     Dates: start: 19990623, end: 20041205
  2. ZYPREXA [Concomitant]

REACTIONS (2)
  - DEATH [None]
  - DIABETES MELLITUS [None]
